FAERS Safety Report 14625381 (Version 1)
Quarter: 2018Q1

REPORT INFORMATION
  Report Type: Spontaneous
  Country: US (occurrence: US)
  Receive Date: 20180312
  Receipt Date: 20180312
  Transmission Date: 20180509
  Serious: Yes (Other)
  Sender: FDA-Public Use
  Company Number: US-ASTELLAS-2018US011446

PATIENT
  Age: 74 Year
  Sex: Male

DRUGS (1)
  1. TACROLIMUS. [Suspect]
     Active Substance: TACROLIMUS
     Indication: LIVER TRANSPLANT
     Dosage: 0.5 MG, TWICE DAILY
     Route: 065

REACTIONS (5)
  - Constipation [Recovered/Resolved]
  - Incisional hernia [Unknown]
  - Spinal cord compression [Unknown]
  - Dysuria [Recovered/Resolved]
  - Hepatocellular carcinoma [Unknown]
